FAERS Safety Report 8981376 (Version 1)
Quarter: 2012Q4

REPORT INFORMATION
  Report Type: 
  Country: US (occurrence: US)
  Receive Date: 20121221
  Receipt Date: 20121221
  Transmission Date: 20130627
  Serious: No
  Sender: FDA-Public Use
  Company Number: US-PFIZER INC-2012323704

PATIENT
  Age: 51 Year
  Sex: Female
  Weight: 63.95 kg

DRUGS (15)
  1. CHANTIX [Suspect]
     Indication: SMOKING CESSATION THERAPY
     Dosage: 1 mg, 2x/day
     Dates: start: 201212
  2. DICLOFENAC [Concomitant]
     Dosage: 20 mg (10 mg, 2 pills), every 8 hours
  3. BUTALBITAL [Concomitant]
     Dosage: UNK, as needed
  4. CALCIUM CITRATE/VITAMIN D [Concomitant]
     Dosage: 315/300 mg, daily
  5. CLONAZEPAM [Concomitant]
     Dosage: UNK, 3x/day
  6. GABAPENTIN [Concomitant]
     Dosage: 600 mg, 3x/day
  7. METOPROLOL SUCCINATE [Concomitant]
     Indication: BLOOD PRESSURE HIGH
     Dosage: 15 mg, daily
  8. RAMIPRIL [Concomitant]
     Indication: BLOOD PRESSURE HIGH
     Dosage: 10 mg, daily
  9. POTASSIUM CHLORIDE [Concomitant]
     Dosage: UNK, daily
  10. PROMETHAZINE [Concomitant]
     Dosage: UNK, 3x/day
  11. OXYCODONE [Concomitant]
     Indication: PAIN
     Dosage: 10/325 mg, 3x/day
  12. MORPHINE SULFATE [Concomitant]
     Dosage: 30 mg, 3x/day
  13. OMEPRAZOLE [Concomitant]
     Dosage: 20 mg, daily
  14. RANITIDINE HYDROCHLORIDE [Concomitant]
     Dosage: 150 mg, 2x/day (every 12 hours)
  15. ZOLOFT [Concomitant]
     Dosage: 100 mg, 3x/day

REACTIONS (4)
  - Diarrhoea [Recovered/Resolved]
  - Pharyngitis [Unknown]
  - Fatigue [Unknown]
  - Gastroenteritis viral [Unknown]
